FAERS Safety Report 7368507-5 (Version None)
Quarter: 2011Q1

REPORT INFORMATION
  Report Type: 
  Country: None (occurrence: None)
  Receive Date: 20110323
  Receipt Date: 20110316
  Transmission Date: 20110831
  Serious: Yes (Other)
  Sender: FDA-Public Use
  Company Number: GB-ASTELLAS-2011EU001054

PATIENT
  Sex: Female
  Weight: 58 kg

DRUGS (5)
  1. VESICARE [Suspect]
     Dosage: 10 MG, BID
     Route: 048
     Dates: start: 20110211, end: 20110220
  2. BISOPROLOL [Concomitant]
     Indication: ARRHYTHMIA
     Dosage: 2.5 MG, BID
     Route: 048
  3. TELFAST [Concomitant]
     Indication: HYPERSENSITIVITY
     Dosage: 180 MG, BID
     Route: 048
  4. CEPHALEXIN [Concomitant]
     Indication: PROPHYLAXIS
     Dosage: 250 MG, BID
     Route: 048
  5. VESICARE [Suspect]
     Indication: STRESS URINARY INCONTINENCE
     Dosage: 5 MG, UNKNOWN/D
     Route: 048
     Dates: start: 20110114

REACTIONS (3)
  - DRUG INEFFECTIVE [None]
  - VISION BLURRED [None]
  - AMNESIA [None]
